FAERS Safety Report 22737090 (Version 3)
Quarter: 2024Q1

REPORT INFORMATION
  Report Type: Spontaneous
  Country: US (occurrence: US)
  Receive Date: 20230721
  Receipt Date: 20240125
  Transmission Date: 20240410
  Serious: Yes (Hospitalization, Other)
  Sender: FDA-Public Use
  Company Number: US-PFIZER INC-PV202300091484

PATIENT
  Age: 64 Year
  Sex: Male
  Weight: 85.7 kg

DRUGS (4)
  1. INLYTA [Suspect]
     Active Substance: AXITINIB
     Indication: Metastatic renal cell carcinoma
     Dosage: 5 MG, 2X/DAY (10 MG, DAILY)
     Dates: start: 201608
  2. INLYTA [Suspect]
     Active Substance: AXITINIB
     Indication: Adrenal gland cancer
     Dosage: 6 MG, DAILY
  3. INLYTA [Suspect]
     Active Substance: AXITINIB
     Dosage: TAKE 3 MG TWO TIMES DAILY
     Route: 048
     Dates: start: 20220913
  4. PAZOPANIB [Concomitant]
     Active Substance: PAZOPANIB
     Indication: Metastatic renal cell carcinoma
     Dosage: UNK

REACTIONS (8)
  - Acute coronary syndrome [Unknown]
  - COVID-19 [Unknown]
  - Blood pressure increased [Unknown]
  - Proctitis [Unknown]
  - Palmar-plantar erythrodysaesthesia syndrome [Unknown]
  - Contusion [Unknown]
  - Stomatitis [Unknown]
  - Diarrhoea [Recovering/Resolving]

NARRATIVE: CASE EVENT DATE: 20161201
